FAERS Safety Report 8012447-5 (Version None)
Quarter: 2011Q4

REPORT INFORMATION
  Report Type: 
  Country: None (occurrence: None)
  Receive Date: 20111228
  Receipt Date: 20111222
  Transmission Date: 20120403
  Serious: Yes (Hospitalization)
  Sender: FDA-Public Use
  Company Number: US-GILEAD-2011-0047367

PATIENT
  Sex: Female

DRUGS (7)
  1. FLUTICASONE FUROATE [Concomitant]
  2. WARFARIN SODIUM [Concomitant]
  3. COREG [Concomitant]
  4. LETAIRIS [Suspect]
     Indication: PULMONARY HYPERTENSION
     Dosage: 5 MG, UNK
     Route: 048
     Dates: start: 20111005, end: 20111017
  5. ACETAMINOPHEN [Concomitant]
  6. FUROSEMIDE [Concomitant]
  7. ESTROGENS CONJUGATED [Concomitant]

REACTIONS (2)
  - UNEVALUABLE EVENT [None]
  - OEDEMA [None]
